FAERS Safety Report 20231810 (Version 2)
Quarter: 2022Q1

REPORT INFORMATION
  Report Type: Report from Study
  Country: US (occurrence: None)
  Receive Date: 20211227
  Receipt Date: 20220131
  Transmission Date: 20220423
  Serious: Yes (Death)
  Sender: FDA-Public Use
  Company Number: 2021A900631

PATIENT
  Age: 27571 Day

DRUGS (1)
  1. SYMBICORT [Suspect]
     Active Substance: BUDESONIDE\FORMOTEROL FUMARATE DIHYDRATE
     Route: 055
     Dates: start: 20190124, end: 20190223

REACTIONS (1)
  - Death [Fatal]

NARRATIVE: CASE EVENT DATE: 20211216
